FAERS Safety Report 15392359 (Version 1)
Quarter: 2018Q3

REPORT INFORMATION
  Report Type: Spontaneous
  Country: FR (occurrence: FR)
  Receive Date: 20180917
  Receipt Date: 20180917
  Transmission Date: 20181010
  Serious: Yes (Hospitalization, Disabling, Other)
  Sender: FDA-Public Use
  Company Number: FR-PFIZER INC-2013217833

PATIENT
  Age: 71 Year
  Sex: Male

DRUGS (10)
  1. NOVATREX NOS [Suspect]
     Active Substance: AZITHROMYCIN OR METHOTREXATE SODIUM
     Dosage: 17.5 MG, WEEKLY (MAXIMUM)
     Route: 048
     Dates: start: 200710, end: 20130606
  2. NOVATREX NOS [Suspect]
     Active Substance: AZITHROMYCIN OR METHOTREXATE SODIUM
     Indication: RHEUMATOID ARTHRITIS
     Dosage: 15 MG, WEEKLY
     Route: 048
     Dates: start: 200710, end: 20130606
  3. FOLIC ACID. [Concomitant]
     Active Substance: FOLIC ACID
     Dosage: 10 MG, DAILY
     Dates: start: 2007
  4. PARIET [Concomitant]
     Active Substance: RABEPRAZOLE SODIUM
     Indication: GASTRITIS
     Dosage: UNK UNK, DAILY (20MG TO 40MG DAILY)
     Route: 048
     Dates: start: 2002
  5. ASASANTIN ? SLOW RELEASE [Concomitant]
     Dosage: 2 DF, DAILY (200 MG/25 MG, 2DF, DAILY)
     Dates: start: 201204
  6. XATRAL ? SLOW RELEASE [Concomitant]
     Active Substance: ALFUZOSIN
     Indication: PROSTATISM
     Dosage: 10 MG, 1X/DAY
     Route: 048
     Dates: start: 2002
  7. DOLIPRANE [Concomitant]
     Active Substance: ACETAMINOPHEN
     Indication: RHEUMATOID ARTHRITIS
     Dosage: 1 G, 3X/DAY
     Route: 048
     Dates: start: 2002
  8. PERINDOPRIL [Concomitant]
     Active Substance: PERINDOPRIL
     Dosage: 2 MG, 1X/DAY
     Dates: start: 201203
  9. ASPEGIC [Concomitant]
     Active Substance: ASPIRIN DL-LYSINE
     Indication: CEREBROVASCULAR ACCIDENT
     Dosage: UNK
     Dates: start: 201203, end: 201204
  10. CHONDROSULF [Concomitant]
     Active Substance: CHONDROITIN SULFATE (CHICKEN)
     Indication: OSTEOARTHRITIS
     Dosage: 3 DF, 1X/DAY
     Route: 048
     Dates: start: 2002

REACTIONS (17)
  - Eye pain [Unknown]
  - Vertigo [Not Recovered/Not Resolved]
  - Dizziness [Unknown]
  - Hemiparesis [Recovered/Resolved]
  - Migraine with aura [Not Recovered/Not Resolved]
  - Somnolence [Recovering/Resolving]
  - Muscular weakness [Unknown]
  - Transient ischaemic attack [Not Recovered/Not Resolved]
  - Cerebrovascular accident [Not Recovered/Not Resolved]
  - Musculoskeletal stiffness [Not Recovered/Not Resolved]
  - Visual impairment [Unknown]
  - Feeling drunk [Recovering/Resolving]
  - Vomiting [Not Recovered/Not Resolved]
  - Gait disturbance [Recovering/Resolving]
  - Dysarthria [Recovered/Resolved]
  - Headache [Unknown]
  - Malaise [Unknown]

NARRATIVE: CASE EVENT DATE: 20120302
